FAERS Safety Report 5943262-1 (Version None)
Quarter: 2008Q4

REPORT INFORMATION
  Report Type: 
  Country: None (occurrence: None)
  Receive Date: 20081106
  Receipt Date: 20081029
  Transmission Date: 20090506
  Serious: Yes (Hospitalization)
  Sender: FDA-Public Use
  Company Number: JP-BRISTOL-MYERS SQUIBB COMPANY-14352405

PATIENT
  Age: 13 Year
  Sex: Female
  Weight: 40 kg

DRUGS (8)
  1. ABILIFY [Suspect]
     Indication: SCHIZOPHRENIA
     Dosage: 1 DF= 6MG/D;12MG/D;6MG/D;8MG/D;12MG/D;15MG/D. 30JAN07 INCREASED TO 12MG
     Route: 048
     Dates: start: 20070130, end: 20070913
  2. RISPERDAL [Suspect]
     Indication: SCHIZOPHRENIA
     Dosage: 1 DF =  1 TO 4MG, REDUCED TO 3MG/DAY
     Route: 048
     Dates: start: 20070406, end: 20070901
  3. BIPERIDEN HYDROCHLORIDE TAB [Concomitant]
     Indication: SCHIZOPHRENIA
  4. QUETIAPINE FUMARATE [Concomitant]
     Indication: SCHIZOPHRENIA
  5. OLANZAPINE [Concomitant]
     Dosage: FORMULATION=TABLET, LATER INCREASED TO 20MG/DAY AND DECREASED TO 10MG/DAY
  6. LORAZEPAM [Concomitant]
     Dosage: FORMULATION: TAB
     Dates: start: 20070409
  7. DEPAS [Concomitant]
     Dosage: FORMULATION: TAB
  8. ROHYPNOL [Concomitant]
     Dosage: FORMULATION: TAB

REACTIONS (3)
  - EXTRAPYRAMIDAL DISORDER [None]
  - GAZE PALSY [None]
  - SOMNOLENCE [None]
